FAERS Safety Report 9585200 (Version 2)
Quarter: 2014Q2

REPORT INFORMATION
  Report Type: Spontaneous
  Country: US (occurrence: US)
  Receive Date: 20131002
  Receipt Date: 20140523
  Transmission Date: 20141212
  Serious: Yes (Hospitalization)
  Sender: FDA-Public Use
  Company Number: US-AMGEN-USASP2013062737

PATIENT
  Age: 62 Year
  Sex: Female

DRUGS (3)
  1. ENBREL [Suspect]
     Indication: PSORIATIC ARTHROPATHY
     Dosage: 50 MG, QWK
     Route: 065
     Dates: start: 20130801, end: 201402
  2. AZULFIDINE [Concomitant]
     Dosage: 500 MG EACH TABLET, 4 TABLETS DAILY
     Dates: start: 201303
  3. SULFASALAZINE [Concomitant]
     Dosage: 500 MG, BID BY MOUTH
     Dates: start: 201304

REACTIONS (5)
  - Stress [Recovered/Resolved]
  - Pain in extremity [Not Recovered/Not Resolved]
  - Arthralgia [Not Recovered/Not Resolved]
  - Limb injury [Recovered/Resolved]
  - Erythema [Not Recovered/Not Resolved]
